FAERS Safety Report 9554941 (Version 3)
Quarter: 2013Q4

REPORT INFORMATION
  Report Type: Report from Study
  Country: IN (occurrence: IN)
  Receive Date: 20130926
  Receipt Date: 20131008
  Transmission Date: 20140711
  Serious: Yes (Death, Life-Threatening, Hospitalization)
  Sender: FDA-Public Use
  Company Number: IN-AMGEN-INDCT2013067002

PATIENT
  Age: 73 Year
  Sex: Male
  Weight: 66 kg

DRUGS (9)
  1. DARBEPOETIN ALFA [Suspect]
     Indication: ANAEMIA OF MALIGNANT DISEASE
     Dosage: UNK
     Route: 065
     Dates: start: 20130807, end: 20130918
  2. PALONOSETRON [Concomitant]
     Indication: PREMEDICATION
     Dosage: 0.25 MG, UNK
     Dates: start: 20130807
  3. DECDAK [Concomitant]
     Indication: PREMEDICATION
     Dosage: 16 MG, UNK
     Dates: start: 20130807
  4. PANTOPRAZOLE [Concomitant]
     Indication: PREMEDICATION
     Dosage: 40 MG, UNK
     Dates: start: 20130807
  5. GRANISETRON [Concomitant]
     Dosage: 1 MG, UNK
     Dates: start: 20130807
  6. CYPROHEPTADINE [Concomitant]
     Indication: DECREASED APPETITE
     Dosage: 10 ML, UNK
     Dates: start: 20130807
  7. GEMCITABINE [Concomitant]
     Dosage: 1700 MG, UNK
     Dates: start: 20130807, end: 20130923
  8. CARBOPLATIN [Concomitant]
     Dosage: 360 MG, UNK
     Dates: start: 20130807, end: 20130923
  9. APREPITANT [Concomitant]
     Indication: PREMEDICATION
     Dosage: UNK
     Dates: start: 20130807

REACTIONS (2)
  - Myocardial infarction [Fatal]
  - Atrial fibrillation [Recovered/Resolved]
